FAERS Safety Report 4672767-9 (Version None)
Quarter: 2005Q2

REPORT INFORMATION
  Report Type: 
  Country: None (occurrence: None)
  Receive Date: 20050523
  Receipt Date: 20050509
  Transmission Date: 20051028
  Serious: Yes (Death)
  Sender: FDA-Public Use
  Company Number: 2004210038NO

PATIENT
  Age: 57 Year
  Sex: Male

DRUGS (7)
  1. ZYVOXID (LINEZOLID) [Suspect]
     Indication: BRAIN ABSCESS
     Dosage: 1200 MG (600 MG, 2 IN 1 D), ORAL
     Route: 048
     Dates: start: 20040302, end: 20040324
  2. ZYVOXID (LINEZOLID) [Suspect]
     Indication: PNEUMONIA NECROTISING
     Dosage: 1200 MG (600 MG, 2 IN 1 D), ORAL
     Route: 048
     Dates: start: 20040302, end: 20040324
  3. VORICONAZOLE (VORICONAZOLE) [Concomitant]
  4. ERYTHROMYCIN ^ESTEDI^ (ERYTHROMYCIN ETHYLSUCCINATE) [Concomitant]
  5. CIPROFLOXACIN [Concomitant]
  6. METRONIDAZOLE [Concomitant]
  7. VANCOMYCIN [Concomitant]

REACTIONS (4)
  - BLOOD CULTURE POSITIVE [None]
  - CANDIDIASIS [None]
  - DRUG INEFFECTIVE [None]
  - STAPHYLOCOCCAL ABSCESS [None]
